FAERS Safety Report 16279566 (Version 1)
Quarter: 2019Q2

REPORT INFORMATION
  Report Type: Other
  Country: IT (occurrence: IT)
  Receive Date: 20190507
  Receipt Date: 20190507
  Transmission Date: 20190711
  Serious: Yes (Hospitalization, Other)
  Sender: FDA-Public Use
  Company Number: IT-LUPIN PHARMACEUTICALS INC.-2019-02766

PATIENT
  Age: 80 Year
  Sex: Male

DRUGS (2)
  1. DAPAROX [PAROXETINE HYDROCHLORIDE] [Suspect]
     Active Substance: PAROXETINE HYDROCHLORIDE
     Indication: SUICIDE ATTEMPT
     Dosage: 14 DOSAGE FORM, SINGLE
     Route: 048
     Dates: start: 20180610, end: 20180610
  2. QUETIAPINE TABLETS [Suspect]
     Active Substance: QUETIAPINE
     Indication: SUICIDE ATTEMPT
     Dosage: 50 DOSAGE FORM, SINGLE
     Route: 048
     Dates: start: 20180610, end: 20180610

REACTIONS (3)
  - Drug abuse [Unknown]
  - Sopor [Unknown]
  - Suicide attempt [Unknown]

NARRATIVE: CASE EVENT DATE: 20180610
